FAERS Safety Report 18452916 (Version 2)
Quarter: 2020Q4

REPORT INFORMATION
  Report Type: Spontaneous
  Country: US (occurrence: US)
  Receive Date: 20201102
  Receipt Date: 20201117
  Transmission Date: 20210114
  Serious: Yes (Hospitalization)
  Sender: FDA-Public Use
  Company Number: US-GW PHARMA-202010USGW03690

PATIENT

DRUGS (2)
  1. VIGABATRIN. [Concomitant]
     Active Substance: VIGABATRIN
     Indication: PRODUCT USED FOR UNKNOWN INDICATION
     Dosage: 500 MILLIGRAM, BID
     Route: 065
  2. EPIDIOLEX [Suspect]
     Active Substance: CANNABIDIOL
     Indication: EPILEPSY
     Dosage: 9.06 MG/KG/DAY, 120 MILLIGRAM, BID
     Route: 048
     Dates: start: 2020

REACTIONS (2)
  - Gastrostomy [Not Recovered/Not Resolved]
  - Poor feeding infant [Unknown]

NARRATIVE: CASE EVENT DATE: 2020
